FAERS Safety Report 15061541 (Version 2)
Quarter: 2018Q4

REPORT INFORMATION
  Report Type: Spontaneous
  Country: US (occurrence: US)
  Receive Date: 20180625
  Receipt Date: 20181008
  Transmission Date: 20190204
  Serious: Yes (Hospitalization, Other)
  Sender: FDA-Public Use
  Company Number: US-009507513-1806USA008741

PATIENT
  Sex: Female
  Weight: 99.32 kg

DRUGS (1)
  1. NUVARING [Suspect]
     Active Substance: ETHINYL ESTRADIOL\ETONOGESTREL
     Indication: CONTRACEPTION
     Dosage: 1 DF, UNK
     Route: 067
     Dates: start: 201505, end: 20160713

REACTIONS (6)
  - Right ventricular dilatation [Unknown]
  - Iron deficiency [Unknown]
  - Tricuspid valve incompetence [Unknown]
  - Thalassaemia [Unknown]
  - Pulmonary embolism [Unknown]
  - Swelling [Unknown]

NARRATIVE: CASE EVENT DATE: 201607
